FAERS Safety Report 5823061-1 (Version None)
Quarter: 2008Q3

REPORT INFORMATION
  Report Type: 
  Country: None (occurrence: None)
  Receive Date: 20080724
  Receipt Date: 20080724
  Transmission Date: 20090109
  Serious: Yes (Other)
  Sender: FDA-Public Use
  Company Number: None

PATIENT
  Age: 10 Year
  Sex: Male

DRUGS (3)
  1. SEROQUEL [Suspect]
     Indication: AGGRESSION
     Dosage: 150MG BID PO
     Route: 048
     Dates: start: 20080525
  2. SEROQUEL [Suspect]
     Indication: ATTENTION DEFICIT/HYPERACTIVITY DISORDER
     Dosage: 150MG BID PO
     Route: 048
     Dates: start: 20080525
  3. VENLAFAXINE 75MG PO QAM [Suspect]
     Indication: ATTENTION DEFICIT/HYPERACTIVITY DISORDER
     Dosage: 75MG QAM PO
     Route: 048
     Dates: start: 20080525

REACTIONS (1)
  - EXTRAPYRAMIDAL DISORDER [None]
